FAERS Safety Report 5933909-8 (Version None)
Quarter: 2008Q4

REPORT INFORMATION
  Report Type: 
  Country: None (occurrence: None)
  Receive Date: 20081024
  Receipt Date: 20081020
  Transmission Date: 20090506
  Serious: Yes (Disabling)
  Sender: FDA-Public Use
  Company Number: SP02067

PATIENT
  Age: 64 Year
  Sex: Female
  Weight: 83.9154 kg

DRUGS (2)
  1. MOVIPREP [Suspect]
     Indication: COLONOSCOPY
     Dosage: ORAL
     Route: 048
     Dates: start: 20080827, end: 20080827
  2. GLIMEPIRIDE/PIOGLITAZONE (DUETACT) [Concomitant]

REACTIONS (2)
  - PRURITUS GENERALISED [None]
  - URTICARIA [None]
